FAERS Safety Report 14063385 (Version 1)
Quarter: 2017Q4

REPORT INFORMATION
  Report Type: Spontaneous
  Country: AU (occurrence: AU)
  Receive Date: 20171009
  Receipt Date: 20171009
  Transmission Date: 20180321
  Serious: Yes (Other)
  Sender: FDA-Public Use
  Company Number: AU-009507513-1710AUS001715

PATIENT
  Age: 68 Year
  Sex: Female

DRUGS (35)
  1. FLUOXETINE [Suspect]
     Active Substance: FLUOXETINE HYDROCHLORIDE
  2. PENICILLIN (UNSPECIFIED) [Suspect]
     Active Substance: PENICILLIN
  3. CALCIUM GLUCONATE. [Concomitant]
     Active Substance: CALCIUM GLUCONATE
  4. HYOSCINE BORATE [Concomitant]
     Active Substance: SCOPOLAMINE HYDROBROMIDE
  5. DULOXETINE HYDROCHLORIDE. [Suspect]
     Active Substance: DULOXETINE HYDROCHLORIDE
  6. GABAPENTIN. [Suspect]
     Active Substance: GABAPENTIN
  7. OLIVE OIL [Concomitant]
     Active Substance: OLIVE OIL
  8. TRAMADOL HYDROCHLORIDE. [Suspect]
     Active Substance: TRAMADOL HYDROCHLORIDE
  9. CELECOXIB. [Concomitant]
     Active Substance: CELECOXIB
  10. FOLIC ACID. [Concomitant]
     Active Substance: FOLIC ACID
  11. ONDANSETRON [Concomitant]
     Active Substance: ONDANSETRON
  12. OXYCONTIN [Concomitant]
     Active Substance: OXYCODONE HYDROCHLORIDE
  13. POTASSIUM CHLORIDE. [Concomitant]
     Active Substance: POTASSIUM CHLORIDE
  14. RANITIDINE. [Concomitant]
     Active Substance: RANITIDINE
  15. ALENDRONATE SODIUM. [Suspect]
     Active Substance: ALENDRONATE SODIUM
     Route: 048
  16. FUROSEMIDE. [Suspect]
     Active Substance: FUROSEMIDE
     Route: 048
  17. MIRTAZAPINE GA [Suspect]
     Active Substance: MIRTAZAPINE
     Route: 048
  18. OXYCODONE [Suspect]
     Active Substance: OXYCODONE
  19. MEPERIDINE HYDROCHLORIDE. [Suspect]
     Active Substance: MEPERIDINE HYDROCHLORIDE
  20. PROLIA [Suspect]
     Active Substance: DENOSUMAB
     Dosage: 60 MG, CYCLICAL
     Route: 058
  21. PROPOXYPHENE HYDROCHLORIDE. [Suspect]
     Active Substance: PROPOXYPHENE HYDROCHLORIDE
  22. PROBIOTICS (UNSPECIFIED) [Concomitant]
     Active Substance: PROBIOTICS NOS
  23. CALCIUM (UNSPECIFIED) [Concomitant]
     Active Substance: CALCIUM
  24. CEFTRIAXONE. [Concomitant]
     Active Substance: CEFTRIAXONE
  25. METHOTREXATE. [Concomitant]
     Active Substance: METHOTREXATE
  26. ACETAMINOPHEN AND CODEINE [Concomitant]
     Active Substance: ACETAMINOPHEN\CODEINE PHOSPHATE
  27. ALBUTEROL. [Concomitant]
     Active Substance: ALBUTEROL
  28. PREGABALIN. [Suspect]
     Active Substance: PREGABALIN
  29. DOMPERIDONE [Concomitant]
     Active Substance: DOMPERIDONE
  30. PANTOPRAZOLE [Concomitant]
     Active Substance: PANTOPRAZOLE
  31. AMITRIPTYLINE HYDROCHLORIDE. [Suspect]
     Active Substance: AMITRIPTYLINE HYDROCHLORIDE
     Route: 048
  32. ADALIMUMAB [Concomitant]
     Active Substance: ADALIMUMAB
  33. CALCITROL [Concomitant]
     Active Substance: CALCITRIOL
  34. CHOLECALCIFEROL [Concomitant]
     Active Substance: CHOLECALCIFEROL
  35. METRONIDAZOLE. [Concomitant]
     Active Substance: METRONIDAZOLE

REACTIONS (20)
  - Abdominal discomfort [Unknown]
  - Dry mouth [Unknown]
  - Influenza like illness [Unknown]
  - Delusion [Unknown]
  - Adrenal insufficiency [Unknown]
  - Dizziness [Unknown]
  - Diarrhoea [Unknown]
  - Vomiting [Unknown]
  - Hypokalaemia [Unknown]
  - Hallucination [Unknown]
  - Night sweats [Unknown]
  - Acute kidney injury [Unknown]
  - Oesophageal perforation [Unknown]
  - Dyspepsia [Unknown]
  - Pain [Unknown]
  - Polyuria [Unknown]
  - Rash [Unknown]
  - Hypocalcaemia [Unknown]
  - Nausea [Unknown]
  - Headache [Unknown]

NARRATIVE: CASE EVENT DATE: 20170111
